FAERS Safety Report 15135114 (Version 1)
Quarter: 2018Q3

REPORT INFORMATION
  Report Type: Spontaneous
  Country: US (occurrence: US)
  Receive Date: 20180710
  Receipt Date: 20180710
  Transmission Date: 20181010
  Serious: No
  Sender: FDA-Public Use
  Company Number: None

PATIENT
  Age: 52 Year
  Sex: Female

DRUGS (1)
  1. DUPIXENT [Suspect]
     Active Substance: DUPILUMAB

REACTIONS (7)
  - Malaise [None]
  - Vision blurred [None]
  - Rash [None]
  - Nasopharyngitis [None]
  - Arthralgia [None]
  - Depression [None]
  - Hot flush [None]

NARRATIVE: CASE EVENT DATE: 20180710
